APPROVED DRUG PRODUCT: METHADONE HYDROCHLORIDE
Active Ingredient: METHADONE HYDROCHLORIDE
Strength: 5MG
Dosage Form/Route: TABLET;ORAL
Application: A040241 | Product #001
Applicant: VISTAPHARM LLC
Approved: May 29, 1998 | RLD: No | RS: No | Type: DISCN